FAERS Safety Report 16145395 (Version 2)
Quarter: 2019Q2

REPORT INFORMATION
  Report Type: Spontaneous
  Country: JP (occurrence: JP)
  Receive Date: 20190402
  Receipt Date: 20190410
  Transmission Date: 20190711
  Serious: Yes (Other)
  Sender: FDA-Public Use
  Company Number: JP-SAKK-2019SA082935AA

PATIENT
  Age: 81 Year
  Sex: Male

DRUGS (5)
  1. CLEXANE 2000IU [Suspect]
     Active Substance: ENOXAPARIN SODIUM
     Indication: FRACTURE NONUNION
     Dosage: 2000 IU, TID
     Route: 058
     Dates: start: 20190323, end: 20190326
  2. FENELMIN [Concomitant]
     Indication: PRODUCT USED FOR UNKNOWN INDICATION
     Dosage: UNK
     Route: 065
  3. ALBUMIN [Concomitant]
     Active Substance: ALBUMIN HUMAN
     Indication: PRODUCT USED FOR UNKNOWN INDICATION
     Route: 042
  4. LOXONIN [Concomitant]
     Active Substance: LOXOPROFEN SODIUM
     Indication: PRODUCT USED FOR UNKNOWN INDICATION
     Dosage: ONLY WHEN FEELING PAIN
     Route: 048
     Dates: start: 20190321, end: 20190321
  5. SERENACE [Concomitant]
     Active Substance: HALOPERIDOL
     Indication: PRODUCT USED FOR UNKNOWN INDICATION
     Dosage: ONLY ONCE IN THE EVENING
     Route: 065
     Dates: start: 20190321, end: 20190321

REACTIONS (2)
  - Prescribed overdose [Unknown]
  - Postoperative delirium [Recovered/Resolved]

NARRATIVE: CASE EVENT DATE: 20190321
